FAERS Safety Report 8955091 (Version 1)
Quarter: 2012Q4

REPORT INFORMATION
  Report Type: Spontaneous
  Country: FR (occurrence: None)
  Receive Date: 20121130
  Receipt Date: 20121130
  Transmission Date: 20130627
  Serious: Yes (Other)
  Sender: FDA-Public Use
  Company Number: B0848244A

PATIENT

DRUGS (1)
  1. KETOCONAZOLE [Suspect]
     Indication: CUSHING^S SYNDROME

REACTIONS (1)
  - Cholestasis [None]
